FAERS Safety Report 6499820-1 (Version None)
Quarter: 2009Q4

REPORT INFORMATION
  Report Type: 
  Country: None (occurrence: None)
  Receive Date: 20091214
  Receipt Date: 20081230
  Transmission Date: 20100525
  Serious: No
  Sender: FDA-Public Use
  Company Number: 2009000004

PATIENT
  Sex: Male

DRUGS (4)
  1. FENTORA [Suspect]
     Indication: BACK PAIN
     Dosage: (800 MCG), BU
  2. FENTORA [Suspect]
     Indication: PAIN IN EXTREMITY
     Dosage: (800 MCG), BU
  3. OPANA [Concomitant]
  4. ROXICODONE [Concomitant]

REACTIONS (1)
  - CIRCUMSTANCE OR INFORMATION CAPABLE OF LEADING TO MEDICATION ERROR [None]
